FAERS Safety Report 8346220-5 (Version None)
Quarter: 2012Q2

REPORT INFORMATION
  Report Type: 
  Country: None (occurrence: None)
  Receive Date: 20120509
  Receipt Date: 20120501
  Transmission Date: 20120825
  Serious: Yes (Other)
  Sender: FDA-Public Use
  Company Number: US-US-EMD SERONO, INC.-7121109

PATIENT
  Sex: Male

DRUGS (3)
  1. REBIF [Suspect]
     Route: 058
     Dates: start: 20120201
  2. AMPYRA [Concomitant]
     Indication: GAIT DISTURBANCE
  3. REBIF [Suspect]
     Indication: MULTIPLE SCLEROSIS
     Route: 058
     Dates: start: 20050103

REACTIONS (5)
  - CATARACT [None]
  - SENSATION OF HEAVINESS [None]
  - VISION BLURRED [None]
  - FALL [None]
  - HEADACHE [None]
